FAERS Safety Report 15680079 (Version 6)
Quarter: 2019Q2

REPORT INFORMATION
  Report Type: Spontaneous
  Country: CZ (occurrence: CZ)
  Receive Date: 20181203
  Receipt Date: 20190423
  Transmission Date: 20190711
  Serious: Yes (Life-Threatening, Hospitalization, Other)
  Sender: FDA-Public Use
  Company Number: CZ-ABBVIE-18S-217-2576441-00

PATIENT
  Age: 67 Year
  Sex: Female

DRUGS (6)
  1. SUFENTA [Suspect]
     Active Substance: SUFENTANIL CITRATE
     Indication: ARTHROSCOPY
     Route: 042
     Dates: start: 20181127, end: 20181127
  2. SODIUM CHLORIDE. [Suspect]
     Active Substance: SODIUM CHLORIDE
     Indication: ARTHROSCOPY
     Dosage: DOSAGE FORM: SOLUTION
     Route: 042
     Dates: start: 20181127, end: 20181127
  3. PROPOFOL. [Suspect]
     Active Substance: PROPOFOL
     Indication: ARTHROSCOPY
     Dosage: MCT/LCT FRESENIUS,DOSAGE FORM: EMULSION
     Route: 042
     Dates: start: 20181127, end: 20181127
  4. SEVORANE [Suspect]
     Active Substance: SEVOFLURANE
     Indication: ARTHROSCOPY
     Dosage: 100% 1X250ML,DOSAGE FORM: SOLUTION
     Route: 055
     Dates: start: 20181127, end: 20181127
  5. NOVALGIN (METAMIZOLE SODIUM) [Suspect]
     Active Substance: METAMIZOLE SODIUM
     Indication: ARTHROSCOPY
     Dosage: 5ML-2,5G
     Route: 042
     Dates: start: 20181127, end: 20181127
  6. NOVALGIN (METAMIZOLE SODIUM) [Suspect]
     Active Substance: METAMIZOLE SODIUM
     Route: 042
     Dates: start: 20181127, end: 20181127

REACTIONS (12)
  - Device issue [Unknown]
  - Septic shock [Recovering/Resolving]
  - Hepatorenal failure [Recovering/Resolving]
  - Bacteraemia [Not Recovered/Not Resolved]
  - Petechiae [Recovering/Resolving]
  - Cyanosis central [Recovering/Resolving]
  - Thrombocytopenia [Recovering/Resolving]
  - Back pain [Recovering/Resolving]
  - Nausea [Recovering/Resolving]
  - Tachycardia [Recovering/Resolving]
  - Suspected product quality issue [Unknown]
  - Vomiting [Recovering/Resolving]

NARRATIVE: CASE EVENT DATE: 20181127
